FAERS Safety Report 12486638 (Version 1)
Quarter: 2016Q2

REPORT INFORMATION
  Report Type: Report from Study
  Country: US (occurrence: US)
  Receive Date: 20160621
  Receipt Date: 20160621
  Transmission Date: 20160815
  Serious: Yes (Hospitalization, Other)
  Sender: FDA-Public Use
  Company Number: US-BIOGEN-2016BI00251389

PATIENT
  Age: 58 Year
  Sex: Female

DRUGS (11)
  1. ZOFRAN [Concomitant]
     Active Substance: ONDANSETRON HYDROCHLORIDE
     Indication: PRODUCT USED FOR UNKNOWN INDICATION
     Route: 065
  2. TYSABRI [Suspect]
     Active Substance: NATALIZUMAB
     Route: 042
     Dates: start: 20140602, end: 20141204
  3. DILANTIN [Concomitant]
     Active Substance: PHENYTOIN
     Indication: PRODUCT USED FOR UNKNOWN INDICATION
     Route: 065
  4. PAXIL [Concomitant]
     Active Substance: PAROXETINE HYDROCHLORIDE
     Indication: PRODUCT USED FOR UNKNOWN INDICATION
     Route: 065
  5. GABAPENTIN. [Concomitant]
     Active Substance: GABAPENTIN
     Indication: PRODUCT USED FOR UNKNOWN INDICATION
     Route: 065
  6. TYSABRI [Suspect]
     Active Substance: NATALIZUMAB
     Indication: MULTIPLE SCLEROSIS
     Route: 042
     Dates: start: 20061204, end: 20120406
  7. TYSABRI [Suspect]
     Active Substance: NATALIZUMAB
     Route: 042
  8. METHADONE [Concomitant]
     Active Substance: METHADONE HYDROCHLORIDE
     Indication: HEADACHE
     Route: 065
  9. NAPROXEN. [Concomitant]
     Active Substance: NAPROXEN
     Indication: PRODUCT USED FOR UNKNOWN INDICATION
     Route: 065
  10. VALIUM [Concomitant]
     Active Substance: DIAZEPAM
     Indication: PRODUCT USED FOR UNKNOWN INDICATION
     Route: 065
  11. TRAZODONE [Concomitant]
     Active Substance: TRAZODONE HYDROCHLORIDE
     Indication: PRODUCT USED FOR UNKNOWN INDICATION
     Route: 065

REACTIONS (18)
  - Gait disturbance [Recovered/Resolved]
  - Emotional distress [Recovered/Resolved]
  - Hypotension [Recovered/Resolved]
  - Memory impairment [Recovered/Resolved]
  - Oxygen saturation decreased [Recovered/Resolved]
  - Unresponsive to stimuli [Unknown]
  - Bladder disorder [Recovered/Resolved]
  - Weight decreased [Unknown]
  - Sedation [Recovered/Resolved]
  - Transaminases increased [Recovered/Resolved]
  - Vomiting [Recovered/Resolved]
  - Overdose [Unknown]
  - Fear [Recovered/Resolved]
  - Hypoglycaemia [Recovered/Resolved]
  - Renal pain [Recovered/Resolved]
  - Headache [Recovered/Resolved]
  - Acute kidney injury [Recovered/Resolved]
  - Cognitive disorder [Unknown]

NARRATIVE: CASE EVENT DATE: 2015
